FAERS Safety Report 7786898-8 (Version None)
Quarter: 2011Q3

REPORT INFORMATION
  Report Type: 
  Country: None (occurrence: None)
  Receive Date: 20110929
  Receipt Date: 20110926
  Transmission Date: 20111222
  Serious: Yes (Other)
  Sender: FDA-Public Use
  Company Number: JP-BRISTOL-MYERS SQUIBB COMPANY-16056723

PATIENT
  Age: 55 Year
  Sex: Male

DRUGS (1)
  1. MAXIPIME [Suspect]
     Indication: URINARY TRACT INFECTION
     Dosage: MAXIPIME 1G FOR INJECTION, 4 G/1 DOSE.
     Dates: start: 20110101, end: 20110912

REACTIONS (1)
  - ALTERED STATE OF CONSCIOUSNESS [None]
